FAERS Safety Report 9290626 (Version 7)
Quarter: 2015Q1

REPORT INFORMATION
  Report Type: Report from Study
  Country: US (occurrence: US)
  Receive Date: 20130515
  Receipt Date: 20150114
  Transmission Date: 20150721
  Serious: Yes (Life-Threatening, Hospitalization)
  Sender: FDA-Public Use
  Company Number: US-ROCHE-1222261

PATIENT
  Age: 39 Year
  Sex: Female
  Weight: 77.18 kg

DRUGS (18)
  1. TRASTUZUMAB [Suspect]
     Active Substance: TRASTUZUMAB
     Indication: HER-2 POSITIVE BREAST CANCER
     Dosage: LOADING DOSE AS PER PROTOCOL.
     Route: 042
     Dates: start: 20130319, end: 20130319
  2. TRASTUZUMAB [Suspect]
     Active Substance: TRASTUZUMAB
     Dosage: START DATE OF MAINTAINENCE DOSE ESTIMATED AS PER FREQUENCY AND PROTOCOL. THE LAST DOSE PRIOR TO HYPO
     Route: 042
     Dates: start: 20130410
  3. DOCETAXEL. [Suspect]
     Active Substance: DOCETAXEL
     Indication: HER-2 POSITIVE BREAST CANCER
     Dosage: DOSE ALSO REPORTED AS 60 MG/M2. THE LAST DOSE PRIOR TO HYPOKALAEMIA WAS ON 30/APR/2013 AND PRIOR TO
     Route: 042
     Dates: start: 20130319
  4. ZANTAC [Concomitant]
     Active Substance: RANITIDINE HYDROCHLORIDE
     Indication: PREMEDICATION
     Route: 048
     Dates: start: 20130319
  5. IMODIUM [Concomitant]
     Active Substance: LOPERAMIDE HYDROCHLORIDE
     Route: 065
     Dates: start: 20130309
  6. CARBOPLATIN. [Suspect]
     Active Substance: CARBOPLATIN
     Indication: HER-2 POSITIVE BREAST CANCER
     Dosage: DOSE ALSO REPORTED AS 6 AUC. THE LAST DOSE PRIOR TO HYPOKALAEMIA WAS ON 30/APR/2013 AND PRIOR TO HYP
     Route: 042
     Dates: start: 20130319
  7. ALOXI [Concomitant]
     Active Substance: PALONOSETRON HYDROCHLORIDE
     Indication: PREMEDICATION
     Route: 042
     Dates: start: 20130319
  8. DEXAMETHASONE. [Concomitant]
     Active Substance: DEXAMETHASONE
     Indication: PREMEDICATION
     Route: 048
     Dates: start: 20130318
  9. ZOFRAN [Concomitant]
     Active Substance: ONDANSETRON HYDROCHLORIDE
     Route: 065
     Dates: start: 20130319
  10. PERTUZUMAB [Suspect]
     Active Substance: PERTUZUMAB
     Indication: HER-2 POSITIVE BREAST CANCER
     Dosage: LAST DOSE PRIOR TO HYPOKALEMIA:30/APR/2013
     Route: 042
     Dates: start: 20130319
  11. COMPAZINE [Concomitant]
     Active Substance: PROCHLORPERAZINE MALEATE
     Indication: NAUSEA
     Route: 048
     Dates: start: 20130319
  12. DEXAMETHASONE. [Concomitant]
     Active Substance: DEXAMETHASONE
     Route: 042
     Dates: start: 20130319
  13. TYLENOL [Concomitant]
     Active Substance: ACETAMINOPHEN
     Indication: PREMEDICATION
     Route: 048
     Dates: start: 20130319
  14. EMLA [Concomitant]
     Active Substance: LIDOCAINE\PRILOCAINE
     Route: 065
     Dates: start: 20130430
  15. BENADRYL [Concomitant]
     Active Substance: DIPHENHYDRAMINE HYDROCHLORIDE
     Indication: PREMEDICATION
     Route: 042
     Dates: start: 20130319
  16. EMEND [Concomitant]
     Active Substance: APREPITANT
     Route: 042
     Dates: start: 20130319
  17. LOMOTIL (ATROPINE/DIPHENOXYLATE) [Concomitant]
     Indication: DIARRHOEA
     Dosage: 1 EVERY 4 HOURS AS REQUIRED
     Route: 048
     Dates: start: 20130505
  18. PERTUZUMAB [Suspect]
     Active Substance: PERTUZUMAB
     Dosage: MAINTAINENCE DOSE
     Route: 042
     Dates: start: 20130410

REACTIONS (3)
  - Hypokalaemia [Recovered/Resolved]
  - Hypokalaemia [Unknown]
  - Hypocalcaemia [Recovered/Resolved]

NARRATIVE: CASE EVENT DATE: 20130506
